FAERS Safety Report 5124788-X (Version None)
Quarter: 2006Q4

REPORT INFORMATION
  Report Type: 
  Country: None (occurrence: None)
  Receive Date: 20061011
  Receipt Date: 20060929
  Transmission Date: 20070319
  Serious: Yes (Hospitalization)
  Sender: FDA-Public Use
  Company Number: 2006SE05252

PATIENT
  Age: 29463 Day
  Sex: Female

DRUGS (4)
  1. CRESTOR [Suspect]
     Indication: HYPERCHOLESTEROLAEMIA
     Route: 048
     Dates: start: 20060223, end: 20060401
  2. EMCONCOR [Concomitant]
     Route: 048
  3. KINZALMONO [Concomitant]
     Route: 048
  4. EZETIMIBE [Concomitant]
     Dosage: 100 MG WEEK DOSE

REACTIONS (2)
  - ASTHENIA [None]
  - TEMPORAL ARTERITIS [None]
